FAERS Safety Report 5026821-2 (Version None)
Quarter: 2006Q2

REPORT INFORMATION
  Report Type: 
  Country: None (occurrence: None)
  Receive Date: 20060608
  Receipt Date: 20060524
  Transmission Date: 20061013
  Serious: Yes (Death)
  Sender: FDA-Public Use
  Company Number: 20060114

PATIENT
  Age: 89 Year
  Sex: Female

DRUGS (1)
  1. VENOFER [Suspect]
     Dosage: 100 MG INTRAVENOUS
     Route: 042

REACTIONS (1)
  - ANAPHYLACTOID REACTION [None]
